FAERS Safety Report 17589176 (Version 2)
Quarter: 2021Q2

REPORT INFORMATION
  Report Type: Spontaneous
  Country: US (occurrence: US)
  Receive Date: 20200327
  Receipt Date: 20210413
  Transmission Date: 20210716
  Serious: No
  Sender: FDA-Public Use
  Company Number: US-ALLERGAN-1914512US

PATIENT
  Age: 34 Year
  Sex: Female

DRUGS (2)
  1. PROZAC [Concomitant]
     Active Substance: FLUOXETINE HYDROCHLORIDE
     Indication: ANXIETY
     Dosage: UNK
     Dates: start: 2009
  2. LATISSE [Suspect]
     Active Substance: BIMATOPROST
     Indication: EYELASH INJURY
     Dosage: 1/2 DROP
     Route: 065
     Dates: start: 201903, end: 201903

REACTIONS (6)
  - Eyelid exfoliation [Recovered/Resolved]
  - Inappropriate schedule of product administration [Unknown]
  - Swelling of eyelid [Recovering/Resolving]
  - Eyelid skin dryness [Recovered/Resolved]
  - Erythema of eyelid [Recovering/Resolving]
  - Incorrect dose administered [Unknown]

NARRATIVE: CASE EVENT DATE: 201903
